FAERS Safety Report 8785865 (Version 1)
Quarter: 2012Q4

REPORT INFORMATION
  Report Type: 
  Country: US (occurrence: US)
  Receive Date: 20120914
  Receipt Date: 20120914
  Transmission Date: 20130627
  Serious: Yes (Death)
  Sender: FDA-Public Use
  Company Number: PHEH2012US017895

PATIENT
  Age: 67 Year
  Sex: Male

DRUGS (1)
  1. TASIGNA [Suspect]
     Indication: MALIGNANT SOFT TISSUE NEOPLASM
     Dosage: 300 mg, BID
     Route: 048
     Dates: start: 20120612

REACTIONS (1)
  - Death [Fatal]
